FAERS Safety Report 13563770 (Version 1)
Quarter: 2017Q2

REPORT INFORMATION
  Report Type: Spontaneous
  Country: CN (occurrence: CN)
  Receive Date: 20170519
  Receipt Date: 20170519
  Transmission Date: 20170830
  Serious: Yes (Other)
  Sender: FDA-Public Use
  Company Number: CN-PFIZER INC-2017218459

PATIENT

DRUGS (1)
  1. SUTENT [Suspect]
     Active Substance: SUNITINIB MALATE
     Indication: CLEAR CELL RENAL CELL CARCINOMA
     Dosage: UNK
     Route: 048
     Dates: start: 201604

REACTIONS (4)
  - Neoplasm progression [Unknown]
  - Ascites [Unknown]
  - Pleural effusion [Unknown]
  - Coagulopathy [Unknown]

NARRATIVE: CASE EVENT DATE: 201702
